FAERS Safety Report 9610898 (Version 2)
Quarter: 2013Q4

REPORT INFORMATION
  Report Type: Spontaneous
  Country: FR (occurrence: FR)
  Receive Date: 20131009
  Receipt Date: 20131009
  Transmission Date: 20140711
  Serious: Yes (Hospitalization)
  Sender: FDA-Public Use
  Company Number: FR-B.I. PHARMACEUTICALS,INC./RIDGEFIELD-2013-FF-02417FF

PATIENT
  Age: 69 Year
  Sex: Male

DRUGS (5)
  1. PRADAXA [Suspect]
     Indication: ATRIAL FLUTTER
     Dosage: 110MG
     Route: 048
     Dates: start: 20130918, end: 20130926
  2. AMLOR [Concomitant]
  3. FORZAAR [Concomitant]
  4. SECTRAL [Concomitant]
  5. TAHOR [Concomitant]

REACTIONS (8)
  - Haemoptysis [Recovered/Resolved]
  - Vomiting [Recovered/Resolved]
  - Nausea [Recovered/Resolved]
  - Gastrointestinal haemorrhage [Recovered/Resolved]
  - Haematemesis [Recovered/Resolved]
  - Abdominal pain [Unknown]
  - Renal failure acute [Unknown]
  - Atrial flutter [Unknown]
